FAERS Safety Report 16181238 (Version 1)
Quarter: 2019Q2

REPORT INFORMATION
  Report Type: Spontaneous
  Country: PT (occurrence: PT)
  Receive Date: 20190410
  Receipt Date: 20190410
  Transmission Date: 20190711
  Serious: Yes (Disabling)
  Sender: FDA-Public Use
  Company Number: PT-TEVA-2019-PT-1035059

PATIENT
  Age: 36 Year
  Sex: Female
  Weight: 51 kg

DRUGS (1)
  1. SERTRALINA AUROVITAS [Suspect]
     Active Substance: SERTRALINE HYDROCHLORIDE
     Indication: ANXIETY
     Dosage: 25 MILLIGRAM DAILY; 0,50
     Route: 048
     Dates: start: 20190211, end: 20190211

REACTIONS (3)
  - Throat tightness [Recovered/Resolved]
  - Diarrhoea [Recovered/Resolved]
  - Eating disorder [Recovered/Resolved]

NARRATIVE: CASE EVENT DATE: 20190211
